FAERS Safety Report 15395033 (Version 1)
Quarter: 2018Q3

REPORT INFORMATION
  Report Type: Report from Study
  Country: CA (occurrence: CA)
  Receive Date: 20180918
  Receipt Date: 20180918
  Transmission Date: 20181010
  Serious: Yes (Hospitalization, Other)
  Sender: FDA-Public Use
  Company Number: CA-ROCHE-1850385

PATIENT
  Age: 76 Year
  Sex: Female
  Weight: 75 kg

DRUGS (16)
  1. ACTEMRA [Suspect]
     Active Substance: TOCILIZUMAB
     Route: 042
     Dates: start: 20170614
  2. PINDOL [Concomitant]
  3. METHOTREXATE. [Concomitant]
     Active Substance: METHOTREXATE
  4. SYNTHROID [Concomitant]
     Active Substance: LEVOTHYROXINE SODIUM
  5. NOVO?LOPERAMIDE [Concomitant]
  6. NOVOSPIROTON [Concomitant]
  7. ACTEMRA [Suspect]
     Active Substance: TOCILIZUMAB
     Dosage: INFUSION NO.19
     Route: 042
     Dates: start: 20180608
  8. ACTEMRA [Suspect]
     Active Substance: TOCILIZUMAB
     Route: 042
     Dates: start: 20170712
  9. LASIX [Concomitant]
     Active Substance: FUROSEMIDE
  10. ACTEMRA [Suspect]
     Active Substance: TOCILIZUMAB
     Indication: RHEUMATOID ARTHRITIS
     Route: 042
     Dates: start: 20161103
  11. NEXIUM [Concomitant]
     Active Substance: ESOMEPRAZOLE MAGNESIUM
  12. TRAMADOL. [Concomitant]
     Active Substance: TRAMADOL
  13. PLAQUENIL [Concomitant]
     Active Substance: HYDROXYCHLOROQUINE SULFATE
  14. CELEBREX [Concomitant]
     Active Substance: CELECOXIB
  15. FOLIC ACID. [Concomitant]
     Active Substance: FOLIC ACID
  16. ORENCIA [Concomitant]
     Active Substance: ABATACEPT

REACTIONS (14)
  - Blood pressure diastolic decreased [Unknown]
  - Contusion [Not Recovered/Not Resolved]
  - Joint swelling [Not Recovered/Not Resolved]
  - Laceration [Unknown]
  - Body temperature decreased [Unknown]
  - Investigation abnormal [Not Recovered/Not Resolved]
  - Blood pressure fluctuation [Unknown]
  - Blood pressure orthostatic decreased [Unknown]
  - Concussion [Unknown]
  - Concussion [Unknown]
  - Headache [Unknown]
  - Fall [Unknown]
  - Blood pressure systolic increased [Unknown]
  - Fall [Unknown]

NARRATIVE: CASE EVENT DATE: 20161103
